FAERS Safety Report 7355701-2 (Version None)
Quarter: 2011Q1

REPORT INFORMATION
  Report Type: 
  Country: None (occurrence: None)
  Receive Date: 20110316
  Receipt Date: 20110304
  Transmission Date: 20110831
  Serious: Yes (Hospitalization)
  Sender: FDA-Public Use
  Company Number: GB-PFIZER INC-2010116375

PATIENT
  Age: 38 Year
  Sex: Male

DRUGS (2)
  1. IBUPROFEN [Suspect]
     Indication: PAIN
     Dosage: 400 MG, 3X/DAY
     Route: 048
     Dates: end: 20100704
  2. PARACETAMOL [Concomitant]
     Indication: PAIN
     Dosage: 1 G, 4X/DAY
     Route: 048

REACTIONS (1)
  - GASTROINTESTINAL HAEMORRHAGE [None]
